FAERS Safety Report 8603073-5 (Version None)
Quarter: 2012Q3

REPORT INFORMATION
  Report Type: 
  Country: None (occurrence: None)
  Receive Date: 20120817
  Receipt Date: 20120809
  Transmission Date: 20120928
  Serious: Yes (Other)
  Sender: FDA-Public Use
  Company Number: US-ABBOTT-12P-163-0966725-00

PATIENT
  Sex: Male
  Weight: 61.29 kg

DRUGS (4)
  1. HUMIRA [Suspect]
     Indication: CROHN'S DISEASE
     Route: 058
     Dates: start: 20110811, end: 20120401
  2. ANESTHETICS [Suspect]
     Indication: HERNIA REPAIR
     Dates: start: 20120601, end: 20120601
  3. AZULFIDINE [Concomitant]
     Indication: CROHN'S DISEASE
  4. HUMIRA [Suspect]
     Route: 058
     Dates: start: 20120731

REACTIONS (2)
  - INGUINAL HERNIA [None]
  - PRURITUS GENERALISED [None]
